FAERS Safety Report 8009188-7 (Version None)
Quarter: 2011Q4

REPORT INFORMATION
  Report Type: 
  Country: None (occurrence: None)
  Receive Date: 20111227
  Receipt Date: 20111220
  Transmission Date: 20120403
  Serious: Yes (Other)
  Sender: FDA-Public Use
  Company Number: PHHY2011JP111370

PATIENT
  Age: 75 Year
  Sex: Female

DRUGS (4)
  1. NOLVADEX [Concomitant]
     Route: 048
  2. FEMARA [Suspect]
     Route: 048
  3. AROMASIN [Concomitant]
     Route: 048
  4. ZOMETA [Suspect]
     Indication: METASTASES TO BONE
     Route: 041

REACTIONS (2)
  - BREAST CANCER RECURRENT [None]
  - SKIN FLAP NECROSIS [None]
